FAERS Safety Report 23000329 (Version 3)
Quarter: 2023Q4

REPORT INFORMATION
  Report Type: Report from Study
  Country: CA (occurrence: None)
  Receive Date: 20230928
  Receipt Date: 20231120
  Transmission Date: 20240109
  Serious: Yes (Other)
  Sender: FDA-Public Use
  Company Number: 2023A216336

PATIENT
  Age: 60 Year
  Sex: Male
  Weight: 88.2 kg

DRUGS (21)
  1. CERALASERTIB [Suspect]
     Active Substance: CERALASERTIB
     Indication: Non-small cell lung cancer
     Route: 048
     Dates: start: 20230714
  2. CERALASERTIB [Suspect]
     Active Substance: CERALASERTIB
     Indication: Non-small cell lung cancer
     Route: 048
     Dates: start: 20230715
  3. CERALASERTIB [Suspect]
     Active Substance: CERALASERTIB
     Indication: Non-small cell lung cancer
     Route: 048
     Dates: start: 20230716
  4. CERALASERTIB [Suspect]
     Active Substance: CERALASERTIB
     Indication: Non-small cell lung cancer
     Route: 048
     Dates: start: 20230717
  5. CERALASERTIB [Suspect]
     Active Substance: CERALASERTIB
     Indication: Non-small cell lung cancer
     Route: 048
     Dates: start: 20230718
  6. CERALASERTIB [Suspect]
     Active Substance: CERALASERTIB
     Indication: Non-small cell lung cancer
     Route: 048
     Dates: start: 20230719
  7. CERALASERTIB [Suspect]
     Active Substance: CERALASERTIB
     Indication: Non-small cell lung cancer
     Route: 048
     Dates: start: 20230720, end: 20230720
  8. CERALASERTIB [Suspect]
     Active Substance: CERALASERTIB
     Indication: Non-small cell lung cancer
     Route: 048
     Dates: start: 20230811, end: 20230817
  9. DURVALUMAB [Suspect]
     Active Substance: DURVALUMAB
     Indication: Non-small cell lung cancer
     Route: 042
  10. BISOPROLOL [Concomitant]
     Active Substance: BISOPROLOL\BISOPROLOL FUMARATE
     Indication: Tachycardia
     Route: 048
     Dates: start: 202303
  11. LORAZEPAM [Concomitant]
     Active Substance: LORAZEPAM
     Indication: Obstructive sleep apnoea syndrome
     Route: 048
     Dates: start: 2019
  12. VITAMIN D [Concomitant]
     Active Substance: VITAMIN D NOS
     Indication: Supplementation therapy
     Dosage: 3000[IU]/DL DAILY
     Route: 048
     Dates: start: 2021
  13. SENOKOT [Concomitant]
     Active Substance: SENNOSIDES
     Indication: Constipation
     Dosage: 2 TABLETS PRN
     Route: 048
     Dates: start: 2020
  14. LASIX [Concomitant]
     Active Substance: FUROSEMIDE
     Indication: Oedema peripheral
     Route: 048
     Dates: start: 20230425
  15. POTASSIUM [Concomitant]
     Active Substance: POTASSIUM
     Indication: Oedema peripheral
     Route: 048
     Dates: start: 20230425
  16. OXYGEN [Concomitant]
     Active Substance: OXYGEN
     Indication: Dyspnoea
     Route: 045
     Dates: start: 20230525
  17. PREGABALIN [Concomitant]
     Active Substance: PREGABALIN
     Indication: Neuropathy peripheral
     Route: 048
     Dates: start: 20230601
  18. METOCLOPRAMIDE [Concomitant]
     Active Substance: METOCLOPRAMIDE
     Indication: Vomiting
     Route: 048
     Dates: start: 20230714
  19. LOPERAMIDE [Concomitant]
     Active Substance: LOPERAMIDE
     Indication: Diarrhoea
     Dosage: 2.0MG AS REQUIRED
     Route: 048
     Dates: start: 20230714
  20. RANITIDINE [Concomitant]
     Active Substance: RANITIDINE
     Indication: Gastrooesophageal reflux disease
     Dosage: 150.0MG AS REQUIRED
     Route: 048
     Dates: start: 20230721
  21. POLYETHYLENE GLYCOLS [Concomitant]
     Active Substance: POLYETHYLENE GLYCOLS
     Indication: Constipation
     Route: 048
     Dates: start: 20230810

REACTIONS (1)
  - Suspected drug-induced liver injury [Recovering/Resolving]

NARRATIVE: CASE EVENT DATE: 20230914
